FAERS Safety Report 10466941 (Version 1)
Quarter: 2014Q3

REPORT INFORMATION
  Report Type: Report from Study
  Country: US (occurrence: US)
  Receive Date: 20140922
  Receipt Date: 20140922
  Transmission Date: 20150326
  Serious: Yes (Other)
  Sender: FDA-Public Use
  Company Number: PHEH2014US018440

PATIENT
  Age: 22 Year
  Sex: Female

DRUGS (2)
  1. TOBI PODHALER [Suspect]
     Active Substance: TOBRAMYCIN
     Indication: CYSTIC FIBROSIS
     Dosage: 112 MG, BID
     Route: 055
  2. TOBI//TOBRAMYCIN [Concomitant]
     Dosage: UNK UKN, UNK
     Route: 042

REACTIONS (1)
  - Lung transplant rejection [Unknown]

NARRATIVE: CASE EVENT DATE: 20130730
